FAERS Safety Report 13957145 (Version 2)
Quarter: 2018Q1

REPORT INFORMATION
  Report Type: Spontaneous
  Country: JP (occurrence: JP)
  Receive Date: 20170912
  Receipt Date: 20180112
  Transmission Date: 20180508
  Serious: Yes (Hospitalization, Other)
  Sender: FDA-Public Use
  Company Number: JP-BRISTOL-MYERS SQUIBB COMPANY-BMS-2017-079607

PATIENT
  Age: 40 Year
  Sex: Female

DRUGS (1)
  1. METFORMIN HYDROCHLORIDE. [Suspect]
     Active Substance: METFORMIN HYDROCHLORIDE
     Indication: DIABETES MELLITUS
     Dosage: 500 MG, UNK
     Route: 048

REACTIONS (9)
  - Hypokalaemia [Recovering/Resolving]
  - Lactic acidosis [Unknown]
  - Diarrhoea [Unknown]
  - Overdose [Unknown]
  - Hypophosphataemia [Recovering/Resolving]
  - Hypoglycaemic coma [Recovered/Resolved]
  - Hypomagnesaemia [Recovering/Resolving]
  - Nausea [Unknown]
  - Vomiting [Unknown]
